FAERS Safety Report 11571211 (Version 1)
Quarter: 2015Q3

REPORT INFORMATION
  Report Type: Spontaneous
  Country: US (occurrence: US)
  Receive Date: 20150916
  Receipt Date: 20150916
  Transmission Date: 20151125
  Serious: Yes (Other)
  Sender: FDA-Public Use
  Company Number: US-ELI_LILLY_AND_COMPANY-US200909004683

PATIENT
  Age: 68 Year
  Sex: Female

DRUGS (7)
  1. FORTEO [Suspect]
     Active Substance: TERIPARATIDE
     Indication: OSTEOPOROSIS
     Dosage: UNK, DAILY (1/D)
     Dates: start: 20090912
  2. ATIVAN [Concomitant]
     Active Substance: LORAZEPAM
     Dosage: UNK, AS NEEDED
  3. ATENOLOL. [Concomitant]
     Active Substance: ATENOLOL
     Dosage: 1 D/F, UNK
  4. TRAMADOL. [Concomitant]
     Active Substance: TRAMADOL
     Dosage: 0.5 D/F, 3/D
  5. ATENOLOL. [Concomitant]
     Active Substance: ATENOLOL
     Dosage: 2 D/F, UNK
     Dates: start: 20091006
  6. CLONIDINE. [Concomitant]
     Active Substance: CLONIDINE
     Dosage: UNK, AS NEEDED
  7. SYNTHROID [Concomitant]
     Active Substance: LEVOTHYROXINE SODIUM

REACTIONS (6)
  - Stress [Unknown]
  - Somnolence [Recovered/Resolved]
  - Palpitations [Unknown]
  - Hypertension [Not Recovered/Not Resolved]
  - Dizziness [Not Recovered/Not Resolved]
  - Adverse drug reaction [Unknown]

NARRATIVE: CASE EVENT DATE: 2009
